FAERS Safety Report 4658977-5 (Version None)
Quarter: 2005Q2

REPORT INFORMATION
  Report Type: 
  Country: None (occurrence: None)
  Receive Date: 20050511
  Receipt Date: 20050420
  Transmission Date: 20051028
  Serious: Yes (Other)
  Sender: FDA-Public Use
  Company Number: PHNR2005AU00794

PATIENT
  Age: 69 Year
  Sex: Male

DRUGS (4)
  1. THALIDOMIDE [Concomitant]
  2. DEXAMETHASONE [Concomitant]
  3. AREDIA [Suspect]
     Indication: MULTIPLE MYELOMA
     Dates: start: 20000101
  4. ZOMETA [Suspect]
     Indication: MULTIPLE MYELOMA
     Dosage: 4 MG, UNK
     Dates: start: 20040224, end: 20040224

REACTIONS (3)
  - ASEPTIC NECROSIS BONE [None]
  - TOOTH LOSS [None]
  - WOUND DEBRIDEMENT [None]
